FAERS Safety Report 10214221 (Version 1)
Quarter: 2014Q2

REPORT INFORMATION
  Report Type: Spontaneous
  Country: CN (occurrence: CN)
  Receive Date: 20140603
  Receipt Date: 20140603
  Transmission Date: 20141212
  Serious: Yes (Other)
  Sender: FDA-Public Use
  Company Number: CN-ASTRAZENECA-2014SE36958

PATIENT
  Age: 21185 Day
  Sex: Male
  Weight: 49 kg

DRUGS (6)
  1. ESOMEPRAZOLE SODIUM [Suspect]
     Indication: HYPERCHLORHYDRIA
     Route: 042
     Dates: start: 20130607, end: 20130609
  2. ESOMEPRAZOLE MAGNESIUM [Suspect]
     Indication: HYPERCHLORHYDRIA
     Route: 048
     Dates: start: 20130607, end: 20130610
  3. GABEXATE MESILATE [Concomitant]
     Indication: PANCREATIC DISORDER
     Route: 041
     Dates: start: 20130607, end: 20130610
  4. KANGFUXIN SOLUTION [Concomitant]
     Indication: PROPHYLAXIS AGAINST GASTROINTESTINAL ULCER
     Route: 048
     Dates: start: 20130607, end: 20130612
  5. CEFOTAXIME SODIUM [Concomitant]
     Indication: INFECTION
     Route: 041
     Dates: start: 20130609, end: 20130619
  6. ORNIDAZOLE AND SODIUM CHLORIDE [Concomitant]
     Indication: INFECTION
     Dosage: WITH SODIUM CHLORIDE
     Route: 041
     Dates: start: 20130609, end: 20130619

REACTIONS (2)
  - Anxiety [Not Recovered/Not Resolved]
  - Poor quality sleep [Unknown]
